FAERS Safety Report 11129230 (Version 1)
Quarter: 2015Q2

REPORT INFORMATION
  Report Type: Spontaneous
  Country: US (occurrence: US)
  Receive Date: 20150521
  Receipt Date: 20150521
  Transmission Date: 20150821
  Serious: Yes (Other)
  Sender: FDA-Public Use
  Company Number: US-BAXTER-2015BAX026576

PATIENT
  Age: 50 Year
  Sex: Female

DRUGS (1)
  1. HYQVIA [Suspect]
     Active Substance: HUMAN IMMUNOGLOBULIN G\HYALURONIDASE RECOMBINANT HUMAN
     Indication: IMMUNODEFICIENCY COMMON VARIABLE
     Dosage: RAMP UP
     Route: 058
     Dates: start: 20150507, end: 20150507

REACTIONS (5)
  - Choking sensation [Recovered/Resolved]
  - Atrial fibrillation [Not Recovered/Not Resolved]
  - Palpitations [Recovered/Resolved]
  - Lip swelling [Recovered/Resolved]
  - Throat irritation [Recovered/Resolved]

NARRATIVE: CASE EVENT DATE: 20150507
